FAERS Safety Report 12446934 (Version 1)
Quarter: 2016Q2

REPORT INFORMATION
  Report Type: Spontaneous
  Country: US (occurrence: None)
  Receive Date: 20160607
  Receipt Date: 20160607
  Transmission Date: 20160815
  Serious: Yes (Hospitalization)
  Sender: FDA-Public Use
  Company Number: None

PATIENT
  Age: 62 Year
  Sex: Male
  Weight: 103.6 kg

DRUGS (1)
  1. CYCLOBENZAPRINE [Suspect]
     Active Substance: CYCLOBENZAPRINE
     Route: 048
     Dates: start: 20150928, end: 20160103

REACTIONS (11)
  - Leukocytosis [None]
  - Fatigue [None]
  - Drug interaction [None]
  - Sinusitis [None]
  - Toxic encephalopathy [None]
  - Hallucination, auditory [None]
  - Speech disorder [None]
  - Agitation [None]
  - Confusional state [None]
  - Sleep apnoea syndrome [None]
  - Arthralgia [None]

NARRATIVE: CASE EVENT DATE: 20160103
